FAERS Safety Report 23859463 (Version 1)
Quarter: 2024Q2

REPORT INFORMATION
  Report Type: Spontaneous
  Country: US (occurrence: None)
  Receive Date: 20240515
  Receipt Date: 20240515
  Transmission Date: 20240716
  Serious: Yes (Other)
  Sender: FDA-Public Use
  Company Number: None

PATIENT
  Age: 36 Year
  Sex: Female

DRUGS (1)
  1. SKYRIZI [Suspect]
     Active Substance: RISANKIZUMAB-RZAA
     Indication: Crohn^s disease
     Dosage: FREQUENCY : AS DIRECTED; ?FREQUENCY: EVERY 8 WEEKS ?DOSE: 360MG/2.4ML ?

REACTIONS (2)
  - Staphylococcal infection [None]
  - Spinal operation [None]
